APPROVED DRUG PRODUCT: MYCELEX-G
Active Ingredient: CLOTRIMAZOLE
Strength: 500MG
Dosage Form/Route: TABLET;VAGINAL
Application: N019069 | Product #001
Applicant: BAYER PHARMACEUTICALS CORP
Approved: Apr 19, 1985 | RLD: No | RS: No | Type: DISCN